FAERS Safety Report 6412080-2 (Version None)
Quarter: 2009Q4

REPORT INFORMATION
  Report Type: 
  Country: None (occurrence: None)
  Receive Date: 20091020
  Receipt Date: 20091007
  Transmission Date: 20100525
  Serious: Yes (Hospitalization)
  Sender: FDA-Public Use
  Company Number: 2009AC000132

PATIENT
  Age: 49 Year
  Sex: Female

DRUGS (72)
  1. DIGOXIN [Suspect]
     Dosage: 0.25 MG; QD; PO
     Route: 048
  2. XANAX [Concomitant]
  3. LEXAPRO [Concomitant]
  4. LANTUS [Concomitant]
  5. TYLENOL [Concomitant]
  6. ALDACTONE [Concomitant]
  7. LAC-HYDRIN [Concomitant]
  8. BAZA [Concomitant]
  9. LASIX [Concomitant]
  10. LEVAQUIN [Concomitant]
  11. BENAZEPRIL HYDROCHLORIDE [Concomitant]
  12. PEPCID [Concomitant]
  13. LOTENSIN [Concomitant]
  14. CARDIZEM [Concomitant]
  15. AMARYL [Concomitant]
  16. CLARITIN [Concomitant]
  17. METOPROLOL TARTRATE [Concomitant]
  18. TORSEMIDE [Concomitant]
  19. COUMADIN [Concomitant]
  20. SULAR [Concomitant]
  21. TRIAMTERENE AND HYDROCHLOROTHIAZIDE [Concomitant]
  22. DILTIA [Concomitant]
  23. FUROSEMIDE [Concomitant]
  24. K-DUR [Concomitant]
  25. MACROBID [Concomitant]
  26. UROLUBE [Concomitant]
  27. DEMADEX [Concomitant]
  28. REGLAN [Concomitant]
  29. TAMBOCOR [Concomitant]
  30. TOPROL-XL [Concomitant]
  31. HEPARIN [Concomitant]
  32. MAXZIDE [Concomitant]
  33. TILACOR [Concomitant]
  34. TAMBOCOR [Concomitant]
  35. TAZTIA [Concomitant]
  36. KLOR-CON [Concomitant]
  37. MYLANTA [Concomitant]
  38. ASPIRIN [Concomitant]
  39. BENADRYL [Concomitant]
  40. VICODIN [Concomitant]
  41. PHENERGAN HCL [Concomitant]
  42. RESTORIL [Concomitant]
  43. SOLU-MEDROL [Concomitant]
  44. JANUVIA [Concomitant]
  45. NITROGLYCERIN [Concomitant]
  46. NOVOLOG [Concomitant]
  47. NEUTRA-PHOS [Concomitant]
  48. NOVOLOG MIX INSULIN [Concomitant]
  49. OXYGEN [Concomitant]
  50. WARFARIN SODIUM [Concomitant]
  51. TIAZAC [Concomitant]
  52. CEFTIN [Concomitant]
  53. PROMETHAZINE [Concomitant]
  54. METHOCARBAM [Concomitant]
  55. OXYCOD/APAP [Concomitant]
  56. BYETTA [Concomitant]
  57. FAMOTIDINE [Concomitant]
  58. MEDROL [Concomitant]
  59. CIPROFLOXACIN [Concomitant]
  60. BENAZEPRIL HYDROCHLORIDE [Concomitant]
  61. ALPRAZOLAM [Concomitant]
  62. SPIRONOLACTONE [Concomitant]
  63. NITROFUR [Concomitant]
  64. MEDROXYOR AC [Concomitant]
  65. PHENAZOPYRIDINE HCL TAB [Concomitant]
  66. MEPERIDINE/PROMETH CAP [Concomitant]
  67. LOTENSIN [Concomitant]
  68. CARDIZEM [Concomitant]
  69. AMARYL [Concomitant]
  70. CLARITIN [Concomitant]
  71. TORSEMIDE [Concomitant]
  72. ANTACID TAB [Concomitant]

REACTIONS (59)
  - ABDOMINAL PAIN UPPER [None]
  - ACTIVITIES OF DAILY LIVING IMPAIRED [None]
  - AGITATION [None]
  - ANHEDONIA [None]
  - ANXIETY [None]
  - ASTHENIA [None]
  - ATRIAL FIBRILLATION [None]
  - BACK PAIN [None]
  - BLOOD POTASSIUM DECREASED [None]
  - BRADYCARDIA [None]
  - CARDIAC FAILURE CONGESTIVE [None]
  - CARDIOACTIVE DRUG LEVEL INCREASED [None]
  - CHEST PAIN [None]
  - CHRONIC OBSTRUCTIVE PULMONARY DISEASE [None]
  - COLD SWEAT [None]
  - COUGH [None]
  - CRYING [None]
  - CYANOSIS [None]
  - DEPRESSION [None]
  - DERMATITIS [None]
  - DYSPNOEA [None]
  - EAR CONGESTION [None]
  - EAR PAIN [None]
  - ECONOMIC PROBLEM [None]
  - EMOTIONAL DISTRESS [None]
  - FAMILY STRESS [None]
  - FLATULENCE [None]
  - FLUID OVERLOAD [None]
  - GASTROOESOPHAGEAL REFLUX DISEASE [None]
  - GENERALISED OEDEMA [None]
  - HYPERHIDROSIS [None]
  - HYPOGLYCAEMIA [None]
  - ILL-DEFINED DISORDER [None]
  - IRRITABLE BOWEL SYNDROME [None]
  - MULTIPLE INJURIES [None]
  - NASOPHARYNGITIS [None]
  - OEDEMA GENITAL [None]
  - OEDEMA PERIPHERAL [None]
  - OXYGEN SATURATION DECREASED [None]
  - PAIN [None]
  - PAIN IN EXTREMITY [None]
  - PALPITATIONS [None]
  - PANIC ATTACK [None]
  - PICKWICKIAN SYNDROME [None]
  - POLYURIA [None]
  - POSTMENOPAUSAL HAEMORRHAGE [None]
  - POSTNASAL DRIP [None]
  - PROTHROMBIN TIME PROLONGED [None]
  - RALES [None]
  - SENSATION OF PRESSURE [None]
  - SINUSITIS [None]
  - SLEEP APNOEA SYNDROME [None]
  - SOCIAL PROBLEM [None]
  - SOMNOLENCE [None]
  - UTERINE CERVIX ATROPHY [None]
  - UTERINE LEIOMYOMA [None]
  - UTERINE POLYP [None]
  - VENOUS INSUFFICIENCY [None]
  - VENTRICULAR FAILURE [None]
